FAERS Safety Report 10078332 (Version 5)
Quarter: 2015Q2

REPORT INFORMATION
  Report Type: Spontaneous
  Country: CA (occurrence: CA)
  Receive Date: 20140415
  Receipt Date: 20150423
  Transmission Date: 20150821
  Serious: Yes (Hospitalization, Other)
  Sender: FDA-Public Use
  Company Number: CA-ROCHE-1383609

PATIENT
  Age: 22 Year
  Sex: Male
  Weight: 103 kg

DRUGS (5)
  1. FLOVENT [Concomitant]
     Active Substance: FLUTICASONE PROPIONATE
  2. VENTOLIN [Concomitant]
     Active Substance: ALBUTEROL SULFATE
  3. XOLAIR [Suspect]
     Active Substance: OMALIZUMAB
     Indication: ASTHMA
     Dosage: LAST DOSE ON 16/JAN/2013
     Route: 058
     Dates: start: 20101221
  4. XOLAIR [Suspect]
     Active Substance: OMALIZUMAB
     Route: 058
     Dates: start: 20131016
  5. OXEZE [Concomitant]

REACTIONS (15)
  - Ligament sprain [Unknown]
  - Nausea [Unknown]
  - Myalgia [Unknown]
  - Rhinorrhoea [Unknown]
  - Weight increased [Unknown]
  - Road traffic accident [Unknown]
  - Myocarditis [Recovered/Resolved]
  - Blood pressure systolic increased [Unknown]
  - Acne [Unknown]
  - Influenza [Unknown]
  - Ligament rupture [Unknown]
  - Injection site reaction [Unknown]
  - Productive cough [Unknown]
  - Fatigue [Unknown]
  - Injury [Unknown]

NARRATIVE: CASE EVENT DATE: 20101222
